FAERS Safety Report 21212683 (Version 1)
Quarter: 2022Q3

REPORT INFORMATION
  Report Type: Spontaneous
  Country: US (occurrence: None)
  Receive Date: 20220812
  Receipt Date: 20220812
  Transmission Date: 20221027
  Serious: Yes (Hospitalization)
  Sender: FDA-Public Use
  Company Number: None

PATIENT
  Age: 61 Year
  Sex: Female

DRUGS (1)
  1. CAPECITABINE [Suspect]
     Active Substance: CAPECITABINE
     Dosage: 3000MG DAILY ORAL?
     Route: 048

REACTIONS (2)
  - Fatigue [None]
  - Hypersomnia [None]

NARRATIVE: CASE EVENT DATE: 20220812
